FAERS Safety Report 6739797-4 (Version None)
Quarter: 2010Q2

REPORT INFORMATION
  Report Type: 
  Country: None (occurrence: None)
  Receive Date: 20100525
  Receipt Date: 20100512
  Transmission Date: 20101027
  Serious: Yes (Hospitalization, Other)
  Sender: FDA-Public Use
  Company Number: PHFR2010GB00630

PATIENT
  Sex: Male

DRUGS (2)
  1. CLOZARIL [Suspect]
     Indication: SCHIZOPHRENIA
     Dosage: UNK
     Route: 048
     Dates: start: 20040514
  2. CLOZARIL [Suspect]
     Dosage: UNK
     Route: 048

REACTIONS (7)
  - ABNORMAL BEHAVIOUR [None]
  - FALL [None]
  - INFECTION [None]
  - NEUTROPHIL COUNT INCREASED [None]
  - OVERDOSE [None]
  - PSYCHOTIC DISORDER [None]
  - WHITE BLOOD CELL COUNT INCREASED [None]
